FAERS Safety Report 16508938 (Version 1)
Quarter: 2019Q2

REPORT INFORMATION
  Report Type: Spontaneous
  Country: US (occurrence: US)
  Receive Date: 20190521
  Receipt Date: 20190521
  Transmission Date: 20190711
  Serious: Yes (Hospitalization)
  Sender: FDA-Public Use
  Company Number: None

PATIENT
  Age: 81 Year
  Sex: Male

DRUGS (11)
  1. SMZ/IMP DS TAB [Concomitant]
  2. ZANTAC TAB [Concomitant]
  3. HYDROXYCHLOR TAB [Concomitant]
  4. KEPPRA TAB [Concomitant]
  5. TOBI NEB [Concomitant]
  6. ESBRIET [Suspect]
     Active Substance: PIRFENIDONE
     Indication: IDIOPATHIC PULMONARY FIBROSIS
     Route: 048
     Dates: start: 20181227
  7. METOPROL TAT TAB [Concomitant]
  8. MINOCYCLINE CAP [Concomitant]
  9. ZENPEP CAP 20000 UNIT [Concomitant]
  10. SYMBICORT AER [Concomitant]
  11. ZENPEP CAP 3000 UNIT [Concomitant]

REACTIONS (1)
  - Cellulitis [None]

NARRATIVE: CASE EVENT DATE: 20190505
